FAERS Safety Report 23623748 (Version 2)
Quarter: 2024Q2

REPORT INFORMATION
  Report Type: Spontaneous
  Country: CA (occurrence: CA)
  Receive Date: 20240312
  Receipt Date: 20240530
  Transmission Date: 20240716
  Serious: Yes (Hospitalization, Other)
  Sender: FDA-Public Use
  Company Number: CA-FreseniusKabi-FK202403800

PATIENT
  Age: 74 Year
  Sex: Female
  Weight: 54 kg

DRUGS (14)
  1. ETOPOSIDE [Suspect]
     Active Substance: ETOPOSIDE
     Indication: Lymphoma
     Dosage: DOSAGE FORM: NOT SPECIFIED?ROUTE: UNKNOWN
  2. FLUDARABINE [Suspect]
     Active Substance: FLUDARABINE PHOSPHATE
     Indication: Lymphodepletion
     Dosage: ROA: INTRAVENOUS (NOT OTHERWISE SPECIFIED)
  3. FLUDARABINE [Suspect]
     Active Substance: FLUDARABINE PHOSPHATE
     Dosage: ROA: INTRAVENOUS (NOT OTHERWISE SPECIFIED)?DOSAGE FORM: NOT SPECIFIED
  4. FLUDARABINE [Suspect]
     Active Substance: FLUDARABINE PHOSPHATE
     Dosage: ROA: INTRAVENOUS (NOT OTHERWISE SPECIFIED)
  5. IFOSFAMIDE [Suspect]
     Active Substance: IFOSFAMIDE
     Indication: Lymphoma
     Dosage: ROUTE: UNKNOWN
  6. MESNA [Suspect]
     Active Substance: MESNA
     Indication: Lymphoma
     Dosage: DOSAGE FORM: NOT SPECIFIED?ROUTE: UNKNOWN
  7. CARBOPLATIN [Suspect]
     Active Substance: CARBOPLATIN
     Indication: Lymphoma
     Dosage: FOA: SOLUTION INTRAVENOUS?ROA: UNKNOWN
  8. CISPLATIN [Suspect]
     Active Substance: CISPLATIN
     Indication: Lymphoma
     Dosage: ROA: UNKNOWN
  9. DEXAMETHASONE [Suspect]
     Active Substance: DEXAMETHASONE
     Indication: Lymphoma
     Dosage: DOSAGE FORM: NOT SPECIFIED?ROA: UNKNOWN
  10. GEMCITABINE HYDROCHLORIDE [Suspect]
     Active Substance: GEMCITABINE HYDROCHLORIDE
     Indication: Lymphoma
     Dosage: ROA: UNKNOWN
  11. CYCLOPHOSPHAMIDE [Suspect]
     Active Substance: CYCLOPHOSPHAMIDE
     Indication: Product used for unknown indication
     Dosage: ROA: INTRAVENOUS( NOT OTHERWISE SPECIFIED)?DOSAGE FORM: NOT SPECIFIED
  12. CYCLOPHOSPHAMIDE [Suspect]
     Active Substance: CYCLOPHOSPHAMIDE
     Dosage: ROA: INTRAVENOUS( NOT OTHERWISE SPECIFIED)
  13. MELPHALAN HYDROCHLORIDE [Suspect]
     Active Substance: MELPHALAN\MELPHALAN HYDROCHLORIDE
     Indication: Lymphoma
     Dosage: ROA: UNKNOWN?DOSAGE FORM: NOT SPECIFIED
  14. RITUXIMAB [Suspect]
     Active Substance: RITUXIMAB
     Indication: Lymphoma
     Dosage: ROA: UNKNOWN

REACTIONS (4)
  - COVID-19 pneumonia [Not Recovered/Not Resolved]
  - Cytopenia [Not Recovered/Not Resolved]
  - Myelodysplastic syndrome [Not Recovered/Not Resolved]
  - Pneumonia [Not Recovered/Not Resolved]
